FAERS Safety Report 5596427-5 (Version None)
Quarter: 2008Q1

REPORT INFORMATION
  Report Type: 
  Country: None (occurrence: None)
  Receive Date: 20080118
  Receipt Date: 20080110
  Transmission Date: 20080703
  Serious: Yes (Hospitalization)
  Sender: FDA-Public Use
  Company Number: AU-PFIZER INC-2007060119

PATIENT
  Sex: Male

DRUGS (4)
  1. MARAVIROC [Suspect]
     Indication: HIV INFECTION
     Route: 048
  2. COMBIVIR [Suspect]
     Route: 048
  3. NIZATIDINE [Concomitant]
     Route: 048
  4. ACETAMINOPHEN [Concomitant]
     Route: 048

REACTIONS (1)
  - TRANSIENT ISCHAEMIC ATTACK [None]
